FAERS Safety Report 4962407-3 (Version None)
Quarter: 2006Q2

REPORT INFORMATION
  Report Type: 
  Country: None (occurrence: None)
  Receive Date: 20060404
  Receipt Date: 20060322
  Transmission Date: 20061013
  Serious: Yes (Hospitalization, Other)
  Sender: FDA-Public Use
  Company Number: US-AMGEN-US165907

PATIENT
  Sex: Male

DRUGS (21)
  1. EPOGEN [Suspect]
     Indication: DIALYSIS
     Route: 065
     Dates: start: 20041111, end: 20060101
  2. ARANESP [Suspect]
     Indication: DIALYSIS
     Route: 042
     Dates: start: 20060101, end: 20060101
  3. MIDODRINE HCL [Concomitant]
  4. ZOFRAN [Concomitant]
  5. LIPITOR [Concomitant]
  6. VITAMINS NOS [Concomitant]
  7. LASIX [Concomitant]
  8. INSULIN [Concomitant]
  9. LEVAQUIN [Concomitant]
  10. NIFEDIPINE [Concomitant]
  11. OLANZAPINE [Concomitant]
  12. METOPROLOL [Concomitant]
  13. MINOXIDIL [Concomitant]
  14. RENAGEL [Concomitant]
  15. SENSIPAR [Concomitant]
  16. SERTRALINE [Concomitant]
  17. TUMS [Concomitant]
  18. TYLENOL (CAPLET) [Concomitant]
  19. PANTOPRAZOLE [Concomitant]
  20. RITUXIMAB [Concomitant]
     Dates: start: 20051101
  21. CALCIUM CARBONATE [Concomitant]

REACTIONS (7)
  - ARTERIOVENOUS GRAFT THROMBOSIS [None]
  - CARDIAC FAILURE CONGESTIVE [None]
  - FALL [None]
  - LOCALISED INFECTION [None]
  - NON-HODGKIN'S LYMPHOMA [None]
  - SUBDURAL HAEMATOMA [None]
  - THERAPEUTIC RESPONSE DECREASED [None]
